FAERS Safety Report 5422098-4 (Version None)
Quarter: 2007Q3

REPORT INFORMATION
  Report Type: 
  Country: None (occurrence: None)
  Receive Date: 20070821
  Receipt Date: 20070821
  Transmission Date: 20080115
  Serious: No
  Sender: FDA-Public Use
  Company Number: None

PATIENT
  Age: 6 Day
  Sex: Female
  Weight: 4.536 kg

DRUGS (1)
  1. VICODIN [Suspect]
     Indication: CAESAREAN SECTION
     Dosage: 500 MG. PRN PO
     Route: 048
     Dates: start: 20040706, end: 20040712

REACTIONS (5)
  - DRUG EXPOSURE VIA BREAST MILK [None]
  - LETHARGY [None]
  - MATERNAL DRUGS AFFECTING FOETUS [None]
  - NEONATAL RESPIRATORY ARREST [None]
  - RESPIRATORY DISTRESS [None]
